FAERS Safety Report 5768756-3 (Version None)
Quarter: 2008Q2

REPORT INFORMATION
  Report Type: 
  Country: None (occurrence: None)
  Receive Date: 20080610
  Receipt Date: 20080606
  Transmission Date: 20081010
  Serious: Yes (Hospitalization)
  Sender: FDA-Public Use
  Company Number: 2008SP009065

PATIENT
  Age: 55 Year
  Sex: Female

DRUGS (2)
  1. VIRAFERONPEG [Suspect]
     Indication: HEPATITIS C
     Dosage: 80 MCG; SC
     Route: 058
     Dates: start: 20070901
  2. REBETOL [Suspect]
     Indication: HEPATITIS C
     Dosage: 1000 MG; QD
     Dates: start: 20070901

REACTIONS (6)
  - ARTHRALGIA [None]
  - ASTHENIA [None]
  - DEPRESSION [None]
  - GENERAL PHYSICAL CONDITION ABNORMAL [None]
  - MUSCULOSKELETAL PAIN [None]
  - WEIGHT DECREASED [None]
